FAERS Safety Report 8235633-8 (Version None)
Quarter: 2012Q1

REPORT INFORMATION
  Report Type: 
  Country: None (occurrence: None)
  Receive Date: 20120326
  Receipt Date: 20120315
  Transmission Date: 20120608
  Serious: Yes (Life-Threatening)
  Sender: FDA-Public Use
  Company Number: ES-BRISTOL-MYERS SQUIBB COMPANY-16468134

PATIENT
  Age: 66 Year
  Sex: Male
  Weight: 68 kg

DRUGS (3)
  1. CETUXIMAB [Suspect]
     Indication: NON-SMALL CELL LUNG CANCER
     Dosage: FORM: 5MG/ML. MOST RECENT INF 8TH :25AUG09
     Route: 042
     Dates: start: 20090706
  2. DOCETAXEL [Suspect]
     Indication: NON-SMALL CELL LUNG CANCER
     Dosage: ON DAY 1 OF 21 DAY CYCLE MOST RECENT INF 3RD : 18AUG09
     Route: 042
     Dates: start: 20090706
  3. CISPLATIN [Suspect]
     Indication: NON-SMALL CELL LUNG CANCER
     Dosage: ON DAY 1 OF 21 DAY CYCLE. MOST RECENT INF 3RD : 18AUG09
     Route: 042
     Dates: start: 20090706

REACTIONS (1)
  - NEUTROPENIA [None]
